FAERS Safety Report 12194100 (Version 1)
Quarter: 2016Q1

REPORT INFORMATION
  Report Type: Spontaneous
  Country: FR (occurrence: FR)
  Receive Date: 20160321
  Receipt Date: 20160321
  Transmission Date: 20160526
  Serious: Yes (Hospitalization)
  Sender: FDA-Public Use
  Company Number: FR-ROCHE-1728987

PATIENT
  Age: 53 Year
  Sex: Male

DRUGS (4)
  1. IPILIMUMAB [Concomitant]
     Active Substance: IPILIMUMAB
     Route: 065
     Dates: start: 201409
  2. PEMBROLIZUMAB. [Concomitant]
     Active Substance: PEMBROLIZUMAB
     Route: 065
     Dates: start: 201502
  3. DETICENE [Concomitant]
     Active Substance: DACARBAZINE
     Route: 065
     Dates: start: 201508
  4. ZELBORAF [Suspect]
     Active Substance: VEMURAFENIB
     Indication: METASTATIC MALIGNANT MELANOMA
     Dosage: 240 MG
     Route: 048
     Dates: start: 201303, end: 201409

REACTIONS (1)
  - Portal hypertension [Not Recovered/Not Resolved]

NARRATIVE: CASE EVENT DATE: 201406
